FAERS Safety Report 7968868-X (Version None)
Quarter: 2011Q4

REPORT INFORMATION
  Report Type: 
  Country: None (occurrence: None)
  Receive Date: 20111209
  Receipt Date: 20111202
  Transmission Date: 20120403
  Serious: Yes (Other)
  Sender: FDA-Public Use
  Company Number: ES-UCBSA-046861

PATIENT
  Age: 76 Year
  Sex: Male
  Weight: 90 kg

DRUGS (12)
  1. NEUPRO [Suspect]
     Route: 062
     Dates: start: 20110607, end: 20110613
  2. CARBIDOPA AND LEVODOPA [Suspect]
     Dates: start: 20101001, end: 20101007
  3. ELIGARD [Suspect]
     Indication: PROSTATE CANCER
     Dosage: 22.5 MG SOLUTION
  4. LYRICA [Concomitant]
     Indication: PAIN
     Dates: start: 20110611
  5. CARBIDOPA AND LEVODOPA [Suspect]
     Dates: start: 20100924, end: 20100930
  6. AZILECT [Suspect]
     Indication: PARKINSON'S DISEASE
     Dates: start: 20110524
  7. NEUPRO [Suspect]
     Indication: PARKINSON'S DISEASE
     Route: 062
     Dates: start: 20110614
  8. NEUPRO [Suspect]
     Route: 062
     Dates: start: 20110531, end: 20110606
  9. CARBIDOPA AND LEVODOPA [Suspect]
     Dates: start: 20101008, end: 20110523
  10. CARBIDOPA AND LEVODOPA [Suspect]
     Dates: start: 20100917, end: 20100923
  11. NEUPRO [Suspect]
     Route: 062
     Dates: start: 20110524, end: 20110530
  12. CARBIDOPA AND LEVODOPA [Suspect]
     Indication: PARKINSON'S DISEASE
     Dates: start: 20110524

REACTIONS (1)
  - BRACHIAL PLEXOPATHY [None]
